FAERS Safety Report 7289288-X (Version None)
Quarter: 2011Q1

REPORT INFORMATION
  Report Type: 
  Country: None (occurrence: None)
  Receive Date: 20110211
  Receipt Date: 20110208
  Transmission Date: 20110831
  Serious: Yes (Other)
  Sender: FDA-Public Use
  Company Number: US-PFIZER INC-2010154487

PATIENT
  Sex: Female

DRUGS (5)
  1. AMPICILLIN [Concomitant]
     Indication: ANTIBIOTIC THERAPY
     Dosage: UNK
     Dates: start: 20050101, end: 20090101
  2. FOSAMAX [Concomitant]
     Indication: OSTEOPOROSIS
     Dosage: UNK
     Dates: start: 20050101
  3. FOSAMAX [Concomitant]
     Indication: OSTEOARTHRITIS
  4. AROMASIN [Concomitant]
     Indication: BREAST CANCER
     Dosage: UNK
     Dates: start: 20050101
  5. CHANTIX [Suspect]
     Indication: SMOKING CESSATION THERAPY
     Dosage: UNK
     Dates: start: 20070101, end: 20070401

REACTIONS (9)
  - RIB FRACTURE [None]
  - DEPRESSION [None]
  - HIP FRACTURE [None]
  - CLAVICLE FRACTURE [None]
  - ARTHRALGIA [None]
  - MUSCULOSKELETAL PAIN [None]
  - LOSS OF CONSCIOUSNESS [None]
  - SUICIDAL IDEATION [None]
  - MULTIPLE INJURIES [None]
